FAERS Safety Report 5360070-3 (Version None)
Quarter: 2007Q2

REPORT INFORMATION
  Report Type: 
  Country: None (occurrence: None)
  Receive Date: 20070618
  Receipt Date: 20061002
  Transmission Date: 20071010
  Serious: No
  Sender: FDA-Public Use
  Company Number: US-ASTRAZENECA-2006UW19138

PATIENT
  Age: 48 Year
  Sex: Female
  Weight: 101.6 kg

DRUGS (5)
  1. FASLODEX [Suspect]
     Indication: BREAST CANCER FEMALE
     Route: 030
  2. ANTIHYPERTENSIVE [Concomitant]
  3. DIURETIC [Concomitant]
  4. INHALERS [Concomitant]
  5. GLUCOSE CONTROL MEDICATION [Concomitant]

REACTIONS (4)
  - ANXIETY [None]
  - BLOOD GLUCOSE DECREASED [None]
  - DIZZINESS [None]
  - NAUSEA [None]
